FAERS Safety Report 7503503-6 (Version None)
Quarter: 2011Q2

REPORT INFORMATION
  Report Type: 
  Country: None (occurrence: None)
  Receive Date: 20110525
  Receipt Date: 20110518
  Transmission Date: 20111010
  Serious: Yes (Death, Other)
  Sender: FDA-Public Use
  Company Number: PHHY2011JP34177

PATIENT
  Age: 60 Year
  Sex: Male

DRUGS (13)
  1. METHYLPREDNISOLONE [Suspect]
     Dosage: 8 MG, UNK
     Route: 048
     Dates: end: 20100928
  2. INDERAL [Concomitant]
     Dosage: 60 MG
     Route: 048
     Dates: end: 20100928
  3. AMOBAN [Concomitant]
     Dosage: 7.5 MG
     Route: 048
     Dates: end: 20100928
  4. LIPITOR [Concomitant]
     Dosage: 5 MG
     Route: 048
     Dates: end: 20100928
  5. LOSARTAN POTASSIUM [Concomitant]
     Dosage: 25 MG
     Route: 048
     Dates: end: 20100928
  6. LASIX [Concomitant]
     Dosage: 40 MG
     Route: 048
     Dates: end: 20100928
  7. SELBEX [Concomitant]
     Dosage: 150 MG
     Route: 048
     Dates: end: 20100928
  8. NEORAL [Suspect]
     Indication: RENAL TRANSPLANT
     Dosage: 50 MG DAILY
     Route: 048
  9. AZATHIOPRINE [Concomitant]
     Dosage: 50 MG, UNK
     Route: 048
     Dates: end: 20100928
  10. CINAL [Concomitant]
     Dosage: 600 MG
     Route: 048
     Dates: end: 20100928
  11. PROMAC [Concomitant]
     Dosage: 150 MG
     Route: 048
     Dates: end: 20100928
  12. URINORM [Concomitant]
     Dosage: 50 MG
     Route: 048
  13. ROCALTROL [Concomitant]
     Dosage: 0.5?G
     Route: 048
     Dates: end: 20100928

REACTIONS (9)
  - PYREXIA [None]
  - CELLULITIS [None]
  - MYCOBACTERIUM CHELONEI INFECTION [None]
  - ABDOMINAL PAIN [None]
  - PERITONITIS [None]
  - HYPOXIC-ISCHAEMIC ENCEPHALOPATHY [None]
  - DISSEMINATED INTRAVASCULAR COAGULATION [None]
  - RASH [None]
  - SMALL INTESTINAL PERFORATION [None]
